FAERS Safety Report 4909236-4 (Version None)
Quarter: 2006Q1

REPORT INFORMATION
  Report Type: 
  Country: None (occurrence: None)
  Receive Date: 20060210
  Receipt Date: 20060210
  Transmission Date: 20060701
  Serious: No
  Sender: FDA-Public Use
  Company Number: None

PATIENT
  Age: 45 Year
  Sex: Male
  Weight: 90.7194 kg

DRUGS (1)
  1. TRAZODONE HCL [Suspect]
     Indication: MAJOR DEPRESSION
     Dosage: 100 MG QHS PO
     Route: 048
     Dates: start: 20060111

REACTIONS (1)
  - PRIAPISM [None]
